FAERS Safety Report 8877656 (Version 1)
Quarter: 2012Q4

REPORT INFORMATION
  Report Type: 
  Country: US (occurrence: US)
  Receive Date: 20121024
  Receipt Date: 20121024
  Transmission Date: 20130627
  Serious: Yes (Death, Other)
  Sender: FDA-Public Use
  Company Number: PHHY2012US094605

PATIENT
  Age: 65 Year
  Sex: Male

DRUGS (3)
  1. BASILIXIMAB [Suspect]
     Indication: LUNG TRANSPLANT
  2. AZATHIOPRINE [Concomitant]
  3. TACROLIMUS [Concomitant]

REACTIONS (6)
  - Brain death [Fatal]
  - Hyperammonaemia [Fatal]
  - Mental status changes [Fatal]
  - Status epilepticus [Fatal]
  - Renal failure acute [Unknown]
  - Hepatic steatosis [Unknown]
